FAERS Safety Report 10735776 (Version 1)
Quarter: 2015Q1

REPORT INFORMATION
  Report Type: Spontaneous
  Country: AU (occurrence: None)
  Receive Date: 20150121
  Receipt Date: 20150121
  Transmission Date: 20150721
  Serious: Yes (Hospitalization, Other)
  Sender: FDA-Public Use
  Company Number: AU-DEXPHARM-20150008

PATIENT
  Age: 17 Year
  Sex: Female

DRUGS (1)
  1. CHLORHEXIDINE ALCOHOL [Suspect]
     Active Substance: ALCOHOL\CHLORHEXIDINE GLUCONATE
     Indication: PREOPERATIVE CARE

REACTIONS (3)
  - Injury [None]
  - Burns third degree [None]
  - Maternal exposure during delivery [None]
